FAERS Safety Report 5396848-X (Version None)
Quarter: 2007Q3

REPORT INFORMATION
  Report Type: 
  Country: None (occurrence: None)
  Receive Date: 20070725
  Receipt Date: 20070723
  Transmission Date: 20080115
  Serious: Yes (Other)
  Sender: FDA-Public Use
  Company Number: US-BRISTOL-MYERS SQUIBB COMPANY-13854476

PATIENT
  Age: 80 Year
  Sex: Female

DRUGS (11)
  1. COUMADIN [Suspect]
     Indication: DEEP VEIN THROMBOSIS
     Dates: start: 20060403, end: 20060601
  2. REVLIMID [Suspect]
     Indication: MYELODYSPLASTIC SYNDROME
     Dosage: RESTARTED 12-DEC-2006 REDUCED DOSE TO 5MG ON 1-FEB-2007 THEN IT WAS HELD AGAIN
     Route: 048
     Dates: start: 20050216, end: 20070523
  3. PHENYTOIN SODIUM [Suspect]
     Dates: start: 20060401, end: 20060601
  4. LOVENOX [Suspect]
     Indication: DEEP VEIN THROMBOSIS
     Dates: start: 20060403, end: 20060601
  5. SYNTHROID [Concomitant]
  6. NORVASC [Concomitant]
     Indication: HYPERTENSION
  7. OS-CAL [Concomitant]
  8. ZINC [Concomitant]
  9. VITAMIN E [Concomitant]
  10. VITAMIN CAP [Concomitant]
  11. VITAMIN B-12 [Concomitant]

REACTIONS (4)
  - ANAEMIA [None]
  - COAGULOPATHY [None]
  - CONVULSION [None]
  - GASTROINTESTINAL HAEMORRHAGE [None]
